FAERS Safety Report 14260486 (Version 2)
Quarter: 2018Q1

REPORT INFORMATION
  Report Type: Spontaneous
  Country: ME (occurrence: ME)
  Receive Date: 20171207
  Receipt Date: 20180119
  Transmission Date: 20180508
  Serious: Yes (Other)
  Sender: FDA-Public Use
  Company Number: ME-BAYER-2017-231407

PATIENT
  Age: 49 Year
  Sex: Male

DRUGS (1)
  1. NEXAVAR [Suspect]
     Active Substance: SORAFENIB
     Indication: HEPATOCELLULAR CARCINOMA
     Dosage: UNK
     Route: 048
     Dates: start: 20150322

REACTIONS (9)
  - Leukopenia [None]
  - Neutrophil count decreased [None]
  - White blood cell count decreased [None]
  - Liver disorder [None]
  - Rash [None]
  - Hepatocellular carcinoma [None]
  - Hepatocellular carcinoma [None]
  - Seborrhoeic dermatitis [None]
  - Alpha 1 foetoprotein increased [None]

NARRATIVE: CASE EVENT DATE: 20150914
